FAERS Safety Report 14919846 (Version 1)
Quarter: 2018Q2

REPORT INFORMATION
  Report Type: Spontaneous
  Country: US (occurrence: US)
  Receive Date: 20180502
  Receipt Date: 20180502
  Transmission Date: 20180711
  Serious: No
  Sender: FDA-Public Use
  Company Number: None

PATIENT
  Age: 32 Year
  Sex: Male

DRUGS (5)
  1. HUMIRA [Suspect]
     Active Substance: ADALIMUMAB
     Indication: CROHN^S DISEASE
     Dosage: ?          OTHER FREQUENCY:ONCE A WEEK;?
     Route: 058
     Dates: start: 20070828, end: 20180502
  2. PURINETHOL [Concomitant]
     Active Substance: MERCAPTOPURINE
  3. GRN IRON [Concomitant]
  4. MULTIVITAMIN [Concomitant]
     Active Substance: VITAMINS
  5. MERCAPTOPUR [Concomitant]

REACTIONS (1)
  - Influenza [None]

NARRATIVE: CASE EVENT DATE: 20180501
